FAERS Safety Report 8952740 (Version 1)
Quarter: 2012Q4

REPORT INFORMATION
  Report Type: 
  Country: AU (occurrence: AU)
  Receive Date: 20121205
  Receipt Date: 20121205
  Transmission Date: 20130627
  Serious: Yes (Other)
  Sender: FDA-Public Use
  Company Number: AU-ROCHE-1159750

PATIENT
  Age: 18 Year
  Sex: Male

DRUGS (1)
  1. ROACCUTANE [Suspect]
     Indication: ACNE
     Route: 065

REACTIONS (11)
  - Cartilage injury [Unknown]
  - Mass [Unknown]
  - Oedema peripheral [Unknown]
  - Amnesia [Unknown]
  - Immunodeficiency [Unknown]
  - Depression [Unknown]
  - Haemorrhage [Unknown]
  - Pain in extremity [Unknown]
  - Haemorrhage [Unknown]
  - Lip haemorrhage [Unknown]
  - Oedema peripheral [Unknown]
